FAERS Safety Report 15867346 (Version 7)
Quarter: 2022Q4

REPORT INFORMATION
  Report Type: Other
  Country: US (occurrence: None)
  Receive Date: 20190125
  Receipt Date: 20221215
  Transmission Date: 20230112
  Serious: Yes (Other)
  Sender: FDA-Public Use
  Company Number: US-ROCHE-2121467

PATIENT
  Age: 77 Year
  Sex: Male

DRUGS (6)
  1. ESBRIET [Suspect]
     Active Substance: PIRFENIDONE
     Indication: Idiopathic pulmonary fibrosis
     Route: 065
     Dates: start: 201709
  2. ESBRIET [Suspect]
     Active Substance: PIRFENIDONE
     Route: 048
     Dates: start: 20171024
  3. ESBRIET [Suspect]
     Active Substance: PIRFENIDONE
     Indication: Pulmonary fibrosis
     Dosage: TAKE 1 TABLET BY MOUTH 3 TIMES A DAY WITH MEALS
     Route: 048
  4. ESBRIET [Suspect]
     Active Substance: PIRFENIDONE
     Indication: Diabetes mellitus
  5. ESBRIET [Suspect]
     Active Substance: PIRFENIDONE
     Indication: Hypertension
  6. WARFARIN [Concomitant]
     Active Substance: WARFARIN
     Indication: Cardiovascular disorder
     Route: 065

REACTIONS (6)
  - Weight decreased [Not Recovered/Not Resolved]
  - Spinal stenosis [Not Recovered/Not Resolved]
  - Malignant melanoma [Unknown]
  - Neoplasm malignant [Unknown]
  - Weight decreased [Unknown]
  - Pulmonary hypertension [Not Recovered/Not Resolved]
